FAERS Safety Report 18346382 (Version 5)
Quarter: 2020Q4

REPORT INFORMATION
  Report Type: Spontaneous
  Country: FI (occurrence: FI)
  Receive Date: 20201005
  Receipt Date: 20201224
  Transmission Date: 20210114
  Serious: Yes (Hospitalization)
  Sender: FDA-Public Use
  Company Number: FI-ARBOR PHARMACEUTICALS, LLC-FI-2020ARB000814

PATIENT
  Age: 71 Year
  Sex: Male
  Weight: 85.1 kg

DRUGS (8)
  1. TRIPTODUR [Suspect]
     Active Substance: TRIPTORELIN
     Indication: ANDROGEN REPLACEMENT THERAPY
     Dosage: 11.25 MG, 1 IN 3 M
     Route: 030
     Dates: start: 20190919
  2. TRIPTODUR [Suspect]
     Active Substance: TRIPTORELIN
  3. TALAZOPARIB. [Suspect]
     Active Substance: TALAZOPARIB
     Indication: PROSTATE CANCER METASTATIC
     Dosage: 1 IN 1 D
     Route: 048
     Dates: start: 20191018, end: 20200918
  4. KALCIPOS-D [Concomitant]
     Active Substance: CALCIUM CARBONATE\CHOLECALCIFEROL
     Indication: OSTEOPOROSIS PROPHYLAXIS
     Dosage: UNK
     Dates: start: 20160901
  5. TRIPTODUR [Suspect]
     Active Substance: TRIPTORELIN
  6. ENZALUTAMIDE [Suspect]
     Active Substance: ENZALUTAMIDE
     Indication: PROSTATE CANCER METASTATIC
     Dosage: 160 MG, 1 IN 1 D
     Route: 048
     Dates: start: 20191018, end: 20200918
  7. PROLIA [Concomitant]
     Active Substance: DENOSUMAB
     Indication: OSTEOPOROSIS PROPHYLAXIS
     Dosage: UNK
  8. PEGORION [Concomitant]
     Active Substance: POLYETHYLENE GLYCOL 4000
     Indication: CONSTIPATION
     Dosage: UNK

REACTIONS (5)
  - Blood folate decreased [Unknown]
  - Pollakiuria [Unknown]
  - Urinary incontinence [Unknown]
  - Acute coronary syndrome [Recovered/Resolved with Sequelae]
  - Fatigue [Unknown]

NARRATIVE: CASE EVENT DATE: 20191124
